FAERS Safety Report 6441825-0 (Version None)
Quarter: 2009Q4

REPORT INFORMATION
  Report Type: 
  Country: None (occurrence: None)
  Receive Date: 20091116
  Receipt Date: 20091104
  Transmission Date: 20100525
  Serious: Yes (Hospitalization)
  Sender: FDA-Public Use
  Company Number: US-SANOFI-AVENTIS-2009SA000201

PATIENT
  Age: 69 Year
  Sex: Male
  Weight: 107 kg

DRUGS (6)
  1. BLINDED THERAPY [Suspect]
     Indication: PULMONARY EMBOLISM
     Route: 062
  2. ENOXAPARIN SODIUM [Suspect]
     Indication: PULMONARY EMBOLISM
     Route: 062
     Dates: start: 20090810
  3. ASPIRIN [Concomitant]
  4. PLAVIX [Concomitant]
  5. LIPITOR [Concomitant]
  6. COUMADIN [Concomitant]

REACTIONS (1)
  - URINARY TRACT INFECTION [None]
